FAERS Safety Report 13191309 (Version 2)
Quarter: 2017Q2

REPORT INFORMATION
  Report Type: Report from Study
  Country: US (occurrence: US)
  Receive Date: 20170207
  Receipt Date: 20170405
  Transmission Date: 20170830
  Serious: No
  Sender: FDA-Public Use
  Company Number: US-AMGEN-USASL2017019365

PATIENT
  Age: 72 Year
  Sex: Female

DRUGS (2)
  1. NOVOLOG [Concomitant]
     Active Substance: INSULIN ASPART
     Dosage: UNK
  2. ENBREL [Suspect]
     Active Substance: ETANERCEPT
     Indication: PSORIATIC ARTHROPATHY
     Dosage: 50 MG, ONCE A WEEK
     Route: 065

REACTIONS (5)
  - Wrong technique in product usage process [Unknown]
  - Underdose [Unknown]
  - Puncture site pain [Unknown]
  - Accidental exposure to product [Unknown]
  - Injury associated with device [Unknown]

NARRATIVE: CASE EVENT DATE: 201702
